FAERS Safety Report 4877962-1 (Version None)
Quarter: 2006Q1

REPORT INFORMATION
  Report Type: 
  Country: None (occurrence: None)
  Receive Date: 20060110
  Receipt Date: 20051224
  Transmission Date: 20060701
  Serious: Yes (Disabling)
  Sender: FDA-Public Use
  Company Number: DSA_60607_2005

PATIENT
  Age: 11 Year
  Sex: Male

DRUGS (2)
  1. DIHYDROERGOTAMINE MESYLATE [Suspect]
     Indication: ORTHOSTATIC HYPOTENSION
     Dosage: 2 MG QDAY PO
     Route: 048
     Dates: start: 20051021, end: 20051107
  2. MUCOSOLVAN [Concomitant]

REACTIONS (5)
  - ATTENTION DEFICIT/HYPERACTIVITY DISORDER [None]
  - AUTONOMIC NERVOUS SYSTEM IMBALANCE [None]
  - CONDITION AGGRAVATED [None]
  - ORTHOSTATIC HYPOTENSION [None]
  - TREMOR [None]
